FAERS Safety Report 13839956 (Version 8)
Quarter: 2019Q3

REPORT INFORMATION
  Report Type: Report from Study
  Country: DE (occurrence: DE)
  Receive Date: 20170807
  Receipt Date: 20190823
  Transmission Date: 20191004
  Serious: Yes (Death, Hospitalization)
  Sender: FDA-Public Use
  Company Number: DE-EISAI MEDICAL RESEARCH-EC-2017-029898

PATIENT
  Age: 54 Year
  Sex: Female
  Weight: 66.4 kg

DRUGS (10)
  1. FASLODEX [Concomitant]
     Active Substance: FULVESTRANT
  2. ELIQUIS [Concomitant]
     Active Substance: APIXABAN
  3. SPIRONOLACTONE. [Concomitant]
     Active Substance: SPIRONOLACTONE
  4. HALAVEN [Suspect]
     Active Substance: ERIBULIN MESYLATE
     Indication: BREAST CANCER METASTATIC
     Route: 041
     Dates: start: 20170630, end: 20170718
  5. ARANESP [Concomitant]
     Active Substance: DARBEPOETIN ALFA
  6. BISOPROLOL [Concomitant]
     Active Substance: BISOPROLOL
  7. FUROSEMID [Concomitant]
     Active Substance: FUROSEMIDE
  8. AKYNZEO [Concomitant]
     Active Substance: NETUPITANT\PALONOSETRON HYDROCHLORIDE
  9. DEXAMETHASONE. [Concomitant]
     Active Substance: DEXAMETHASONE
  10. XGEVA [Concomitant]
     Active Substance: DENOSUMAB

REACTIONS (4)
  - Intracranial hypotension [Recovering/Resolving]
  - Hypotension [Recovered/Resolved]
  - Malignant neoplasm progression [Fatal]
  - Transaminases increased [Recovering/Resolving]

NARRATIVE: CASE EVENT DATE: 20170703
